FAERS Safety Report 13350684 (Version 1)
Quarter: 2017Q1

REPORT INFORMATION
  Report Type: Report from Study
  Country: FR (occurrence: FR)
  Receive Date: 20170320
  Receipt Date: 20170320
  Transmission Date: 20170429
  Serious: Yes (Hospitalization, Other)
  Sender: FDA-Public Use
  Company Number: FR-TAKEDA-2017TUS005796

PATIENT
  Age: 21 Year
  Sex: Male

DRUGS (1)
  1. COLCHICINE. [Suspect]
     Active Substance: COLCHICINE
     Indication: PRODUCT USED FOR UNKNOWN INDICATION
     Dosage: 18 MG, UNK
     Route: 048

REACTIONS (3)
  - Overdose [Unknown]
  - Suicide attempt [Recovered/Resolved]
  - Toxicity to various agents [Recovered/Resolved]
